FAERS Safety Report 23999360 (Version 1)
Quarter: 2024Q2

REPORT INFORMATION
  Report Type: Spontaneous
  Country: ES (occurrence: ES)
  Receive Date: 20240621
  Receipt Date: 20240621
  Transmission Date: 20240717
  Serious: Yes (Life-Threatening)
  Sender: FDA-Public Use
  Company Number: ES-SUN PHARMACEUTICAL INDUSTRIES LTD-2024RR-452740

PATIENT
  Age: 47 Year
  Sex: Female

DRUGS (9)
  1. PREGABALIN [Interacting]
     Active Substance: PREGABALIN
     Indication: Pain
     Dosage: 600 MILLIGRAM, DAILY
     Route: 048
     Dates: start: 2023, end: 20240226
  2. TAPENTADOL [Interacting]
     Active Substance: TAPENTADOL
     Indication: Pain
     Dosage: 100 MILLIGRAM, BID
     Route: 048
     Dates: start: 20240205, end: 20240226
  3. METHOCARBAMOL [Interacting]
     Active Substance: METHOCARBAMOL
     Indication: Pain
     Dosage: 500 MILLIGRAM, DAILY
     Route: 048
     Dates: start: 2023, end: 20240226
  4. CARBAMAZEPINE [Interacting]
     Active Substance: CARBAMAZEPINE
     Indication: Pain
     Dosage: 600 MILLIGRAM, DAILY
     Route: 048
     Dates: start: 2023, end: 20240226
  5. DIAZEPAM [Interacting]
     Active Substance: DIAZEPAM
     Indication: Pain
     Dosage: 10 MILLIGRAM, DAILY
     Route: 048
     Dates: start: 2023, end: 20240226
  6. TRAMADOL [Interacting]
     Active Substance: TRAMADOL\TRAMADOL HYDROCHLORIDE
     Indication: Pain
     Dosage: 150 MILLIGRAM, TID
     Route: 048
     Dates: start: 20240213, end: 20240226
  7. AMITRIPTYLINE [Interacting]
     Active Substance: AMITRIPTYLINE
     Indication: Pain
     Dosage: 50 MILLIGRAM, DAILY
     Route: 048
     Dates: start: 2023, end: 20240226
  8. TRAZODONE [Interacting]
     Active Substance: TRAZODONE HYDROCHLORIDE
     Indication: Pain
     Dosage: 150 MILLIGRAM, DAILY
     Route: 048
     Dates: start: 2023, end: 20240226
  9. LIDOCAINE [Interacting]
     Active Substance: LIDOCAINE
     Indication: Pain
     Dosage: 370 MILLIGRAM
     Route: 040
     Dates: start: 20240216, end: 20240223

REACTIONS (2)
  - Respiratory depression [Recovered/Resolved]
  - Confusional state [Recovered/Resolved]

NARRATIVE: CASE EVENT DATE: 20240224
